FAERS Safety Report 17060454 (Version 1)
Quarter: 2019Q4

REPORT INFORMATION
  Report Type: Spontaneous
  Country: JP (occurrence: JP)
  Receive Date: 20191121
  Receipt Date: 20191121
  Transmission Date: 20200122
  Serious: Yes (Other)
  Sender: FDA-Public Use
  Company Number: NVSJ2019JP003933

PATIENT
  Age: 37 Year
  Sex: Female

DRUGS (2)
  1. NILOTINIB [Suspect]
     Active Substance: NILOTINIB
     Indication: CHRONIC MYELOID LEUKAEMIA
     Dosage: UNK
     Route: 048
     Dates: start: 201503, end: 201604
  2. INTERFERON [Concomitant]
     Active Substance: INTERFERON
     Indication: CHRONIC MYELOID LEUKAEMIA
     Dosage: UNK
     Route: 065
     Dates: start: 201604

REACTIONS (5)
  - Abortion [Unknown]
  - Maternal exposure before pregnancy [Unknown]
  - Pyrexia [Unknown]
  - Intrauterine infection [Unknown]
  - Foetal death [Unknown]

NARRATIVE: CASE EVENT DATE: 201606
